FAERS Safety Report 11719166 (Version 1)
Quarter: 2015Q4

REPORT INFORMATION
  Report Type: Spontaneous
  Country: US (occurrence: None)
  Receive Date: 20151109
  Receipt Date: 20151109
  Transmission Date: 20160304
  Serious: Yes (Other)
  Sender: FDA-Public Use
  Company Number: None

PATIENT
  Age: 63 Year
  Sex: Female
  Weight: 52.16 kg

DRUGS (4)
  1. LEVOTHYROXINE. [Concomitant]
     Active Substance: LEVOTHYROXINE
  2. BEXAROTENE. [Suspect]
     Active Substance: BEXAROTENE
     Indication: T-CELL LYMPHOMA
     Dosage: 5 PILLS
     Route: 048
     Dates: start: 20150708, end: 20150915
  3. FENOFIBRATE. [Concomitant]
     Active Substance: FENOFIBRATE
  4. ATORVASTATIN [Concomitant]
     Active Substance: ATORVASTATIN

REACTIONS (4)
  - Malignant neoplasm progression [None]
  - Product substitution issue [None]
  - T-cell lymphoma [None]
  - Pruritus [None]

NARRATIVE: CASE EVENT DATE: 20150915
